FAERS Safety Report 16589895 (Version 1)
Quarter: 2019Q3

REPORT INFORMATION
  Report Type: Spontaneous
  Country: CA (occurrence: CA)
  Receive Date: 20190718
  Receipt Date: 20190718
  Transmission Date: 20191004
  Serious: Yes (Death, Hospitalization)
  Sender: FDA-Public Use
  Company Number: CA-TEVA-2019-CA-1079057

PATIENT
  Age: 23 Year
  Sex: Male

DRUGS (4)
  1. HEROIN [Suspect]
     Active Substance: DIAMORPHINE
     Indication: PRODUCT USED FOR UNKNOWN INDICATION
     Route: 065
  2. CARBAMAZEPINE. [Suspect]
     Active Substance: CARBAMAZEPINE
     Indication: PRODUCT USED FOR UNKNOWN INDICATION
     Route: 065
  3. CODEINE [Suspect]
     Active Substance: CODEINE
     Indication: PRODUCT USED FOR UNKNOWN INDICATION
     Route: 065
  4. OXYCODONE [Suspect]
     Active Substance: OXYCODONE
     Indication: PRODUCT USED FOR UNKNOWN INDICATION
     Route: 065

REACTIONS (14)
  - Loss of consciousness [Fatal]
  - Anxiety [Fatal]
  - Tremor [Fatal]
  - Depression [Fatal]
  - General physical health deterioration [Fatal]
  - Intentional overdose [Fatal]
  - Bipolar disorder [Fatal]
  - Drug abuse [Fatal]
  - Life support [Fatal]
  - Seizure [Fatal]
  - Suicide attempt [Fatal]
  - Underweight [Fatal]
  - Drug dependence [Fatal]
  - Malaise [Fatal]
